FAERS Safety Report 6936765-4 (Version None)
Quarter: 2010Q3

REPORT INFORMATION
  Report Type: 
  Country: None (occurrence: None)
  Receive Date: 20100818
  Receipt Date: 20100811
  Transmission Date: 20110219
  Serious: Yes (Hospitalization)
  Sender: FDA-Public Use
  Company Number: 016606

PATIENT
  Sex: Female

DRUGS (13)
  1. KEPPRA [Suspect]
     Dosage: 250 MG ORAL, 500 MG, ORAL
     Route: 048
     Dates: start: 20100629, end: 20100705
  2. KEPPRA [Suspect]
     Dosage: 250 MG ORAL, 500 MG, ORAL
     Route: 048
     Dates: start: 20100706, end: 20100712
  3. DALACINE /00166003/ (DALACINE) [Suspect]
     Indication: CEREBRAL TOXOPLASMOSIS
     Dosage: 600 MG QID INTRAVENOUS (NOT OTHERWISE SPECIFIED)
     Route: 048
     Dates: start: 20100630, end: 20100709
  4. MALOCIDE /00112501/ (MALOCIDE) [Suspect]
     Indication: CEREBRAL TOXOPLASMOSIS
     Dosage: 50 MG BID ORAL, 50 MG QD ORAL
     Route: 048
     Dates: start: 20100629, end: 20100701
  5. MALOCIDE /00112501/ (MALOCIDE) [Suspect]
     Indication: CEREBRAL TOXOPLASMOSIS
     Dosage: 50 MG BID ORAL, 50 MG QD ORAL
     Route: 048
     Dates: start: 20100702, end: 20100712
  6. TOPALGIC /00599202/ (TOPALGIC) (NOT SPECIFIED) [Suspect]
     Dosage: 50 MG BID ORAL
     Route: 048
     Dates: start: 20100624, end: 20100702
  7. PRIMPERAN /00041901/ (PRIMPERAN) (NOT SPECIFIED) [Suspect]
     Dosage: 3 DOSES FORMS ORAL
     Route: 048
     Dates: start: 20100702, end: 20100705
  8. ATRIPLA [Suspect]
     Dosage: 600MG/200MG/245MG (EFAVIRENZ, EMTRICITABINE, TENOFOVIR DISOPROXIL) 1 DOSAGE FORM ORAL
     Route: 048
     Dates: start: 20090701, end: 20100709
  9. IDARAC [Suspect]
     Dosage: ORAL
     Dates: start: 20100628, end: 20100710
  10. WELLVONE (WELLVONE) (NOT SPECIFIED) [Suspect]
     Indication: PNEUMOCYSTIS JIROVECI PNEUMONIA
     Dosage: 750 MG BID ORAL
     Route: 048
     Dates: start: 20100625, end: 20100702
  11. SPECIAFOLDINE (SPECIAFOLDINE) (NOT SPECIFIED) [Suspect]
     Dates: end: 20100711
  12. ATARAX [Concomitant]
  13. LEXOMIL [Concomitant]

REACTIONS (10)
  - AMNESIA [None]
  - ASTHENIA [None]
  - CEREBRAL TOXOPLASMOSIS [None]
  - CONVULSION [None]
  - HAEMOGLOBIN DECREASED [None]
  - HEADACHE [None]
  - LEUKOPENIA [None]
  - LOSS OF CONSCIOUSNESS [None]
  - MALAISE [None]
  - THROMBOCYTOPENIA [None]
